FAERS Safety Report 6077948-8 (Version None)
Quarter: 2009Q1

REPORT INFORMATION
  Report Type: 
  Country: None (occurrence: None)
  Receive Date: 20090211
  Receipt Date: 20090206
  Transmission Date: 20090719
  Serious: Yes (Other)
  Sender: FDA-Public Use
  Company Number: THQ2009A00644

PATIENT
  Age: 59 Year
  Sex: Male

DRUGS (4)
  1. LANSOPRAZOLE [Suspect]
     Indication: HIATUS HERNIA
     Dosage: 30 MG (30 MG, 1 IN 1 D), PER ORAL
     Route: 048
     Dates: start: 20040101
  2. LANSOX (LANSOPRAZOLE), 254204 [Suspect]
     Dosage: PER ORAL
     Route: 048
  3. ANTIHISTAMINES FOR SYSTEMIC USE [Concomitant]
  4. ANALGESICS [Concomitant]

REACTIONS (5)
  - ABDOMINAL PAIN UPPER [None]
  - BLOOD PRESSURE INCREASED [None]
  - CHEST PAIN [None]
  - SKIN HAEMORRHAGE [None]
  - TYPE III IMMUNE COMPLEX MEDIATED REACTION [None]
